FAERS Safety Report 9511622 (Version 1)
Quarter: 2013Q3

REPORT INFORMATION
  Report Type: Spontaneous
  Country: IT (occurrence: None)
  Receive Date: 20130906
  Receipt Date: 20130906
  Transmission Date: 20140515
  Serious: Yes (Life-Threatening)
  Sender: FDA-Public Use
  Company Number: FK201304044

PATIENT
  Age: 64 Year
  Sex: Female

DRUGS (1)
  1. PACLITAXEL [Suspect]
     Indication: BREAST CANCER
     Dosage: 250 MG, TOTAL, INTRAVENOUS
     Route: 042
     Dates: start: 20130705, end: 20130705

REACTIONS (3)
  - Bronchospasm [None]
  - Dyspnoea [None]
  - Erythema [None]
